FAERS Safety Report 16346101 (Version 1)
Quarter: 2019Q2

REPORT INFORMATION
  Report Type: Spontaneous
  Country: SG (occurrence: SG)
  Receive Date: 20190523
  Receipt Date: 20190523
  Transmission Date: 20190711
  Serious: Yes (Other)
  Sender: FDA-Public Use
  Company Number: SG-GLAXOSMITHKLINE-SG2019GSK090420

PATIENT
  Age: 65 Year
  Sex: Female

DRUGS (1)
  1. ACITRETIN. [Suspect]
     Active Substance: ACITRETIN
     Indication: PROPHYLACTIC CHEMOTHERAPY
     Dosage: UNK

REACTIONS (4)
  - Skin lesion [Unknown]
  - Skin erosion [Unknown]
  - Squamous cell carcinoma of skin [Unknown]
  - Skin ulcer [Unknown]
